FAERS Safety Report 21294852 (Version 1)
Quarter: 2022Q3

REPORT INFORMATION
  Report Type: Spontaneous
  Country: US (occurrence: US)
  Receive Date: 20220905
  Receipt Date: 20220905
  Transmission Date: 20221027
  Serious: Yes (Hospitalization, Other)
  Sender: FDA-Public Use
  Company Number: US-MLMSERVICE-20220817-3739846-1

PATIENT
  Age: 70 Year
  Sex: Male

DRUGS (1)
  1. SULFAMETHOXAZOLE\TRIMETHOPRIM [Suspect]
     Active Substance: SULFAMETHOXAZOLE\TRIMETHOPRIM
     Indication: Pulmonary nocardiosis
     Dosage: 3 DOSAGE FORM, TID
     Route: 065

REACTIONS (4)
  - Ureteric obstruction [Recovered/Resolved]
  - Renal failure [Unknown]
  - Nephrolithiasis [Recovered/Resolved]
  - Ureterolithiasis [Recovered/Resolved]
